FAERS Safety Report 25510061 (Version 1)
Quarter: 2025Q3

REPORT INFORMATION
  Report Type: Spontaneous
  Country: CN (occurrence: CN)
  Receive Date: 20250703
  Receipt Date: 20250703
  Transmission Date: 20251020
  Serious: Yes (Other)
  Sender: BAYER HEALTHCARE PHARMACEUTICALS INC.
  Company Number: CN-BAYER-2025A087185

PATIENT
  Age: 82 Year
  Sex: Male
  Weight: 65.7 kg

DRUGS (1)
  1. AVELOX [Suspect]
     Active Substance: MOXIFLOXACIN HYDROCHLORIDE
     Indication: Anti-infective therapy
     Dosage: 0.4 G, QD
     Route: 041
     Dates: start: 20250627, end: 20250627

REACTIONS (6)
  - Ventricular tachycardia [Recovered/Resolved]
  - Loss of consciousness [Recovered/Resolved]
  - Pyrexia [None]
  - Eye movement disorder [Recovered/Resolved]
  - Muscle twitching [Recovered/Resolved]
  - Ventricular extrasystoles [None]

NARRATIVE: CASE EVENT DATE: 20250628
